FAERS Safety Report 8582510-9 (Version None)
Quarter: 2012Q3

REPORT INFORMATION
  Report Type: 
  Country: None (occurrence: None)
  Receive Date: 20120809
  Receipt Date: 20120806
  Transmission Date: 20120928
  Serious: Yes (Death)
  Sender: FDA-Public Use
  Company Number: FR-ROCHE-1096266

PATIENT
  Sex: Female

DRUGS (4)
  1. AVASTIN [Suspect]
     Indication: COLON CANCER
     Dates: start: 20090525, end: 20090804
  2. LEUCOVORIN CALCIUM [Concomitant]
  3. OXALIPLATIN [Concomitant]
  4. FLUOROURACIL [Concomitant]

REACTIONS (4)
  - DEATH [None]
  - ASTHENIA [None]
  - NEUROPATHY PERIPHERAL [None]
  - NAUSEA [None]
